FAERS Safety Report 8091295-4 (Version None)
Quarter: 2012Q1

REPORT INFORMATION
  Report Type: 
  Country: None (occurrence: None)
  Receive Date: 20120129
  Receipt Date: 20111013
  Transmission Date: 20120608
  Serious: Yes (Other)
  Sender: FDA-Public Use
  Company Number: US-ABBOTT-11P-163-0865216-00

PATIENT
  Age: 58 Year
  Sex: Male

DRUGS (9)
  1. PREDNISONE TAB [Concomitant]
     Indication: ARTHRITIS
     Dosage: 1/2 TABLET DAILY
  2. ASPIRIN [Concomitant]
     Indication: PRODUCT USED FOR UNKNOWN INDICATION
     Dates: start: 20110701
  3. HUMIRA [Suspect]
     Indication: RHEUMATOID ARTHRITIS
     Dosage: INTERRUPTED
     Dates: start: 20110914
  4. QUINAPRIL [Concomitant]
     Indication: HYPERTENSION
     Dosage: DAILY
  5. ZOLPIDEM [Concomitant]
     Indication: SLEEP DISORDER THERAPY
     Dosage: 1/2 TABLET AS NEEDED
     Dates: start: 20110201
  6. TETRACYCLINE [Concomitant]
     Indication: ROSACEA
  7. GLYBURIDE AND METFORMIN HYDROCHLORIDE [Concomitant]
     Indication: DIABETES MELLITUS
     Dosage: TWICE DAILY, 2.5/500 MG
     Dates: start: 20060101
  8. CIALIS [Concomitant]
     Indication: ERECTILE DYSFUNCTION
     Dosage: 1/3 TABLET AS NEEDED
     Dates: start: 20110201
  9. TRIAMTERENE HCZ [Concomitant]
     Indication: SWELLING
     Dosage: 37.5/25-424 MG, DAILY

REACTIONS (2)
  - CONTUSION [None]
  - HERNIA REPAIR [None]
